FAERS Safety Report 18207220 (Version 1)
Quarter: 2020Q3

REPORT INFORMATION
  Report Type: Spontaneous
  Country: US (occurrence: US)
  Receive Date: 20200828
  Receipt Date: 20200828
  Transmission Date: 20201103
  Serious: No
  Sender: FDA-Public Use
  Company Number: None

PATIENT
  Age: 64 Year
  Sex: Male
  Weight: 79 kg

DRUGS (2)
  1. XELODA [Suspect]
     Active Substance: CAPECITABINE
     Dates: end: 20160502
  2. ELOXATIN [Suspect]
     Active Substance: OXALIPLATIN
     Dates: end: 20160419

REACTIONS (4)
  - Plasma cell myeloma [None]
  - Anaemia [None]
  - Monoclonal immunoglobulin present [None]
  - Diverticulum [None]

NARRATIVE: CASE EVENT DATE: 20200812
